FAERS Safety Report 10376585 (Version 1)
Quarter: 2014Q3

REPORT INFORMATION
  Report Type: Spontaneous
  Country: US (occurrence: None)
  Receive Date: 20140807
  Receipt Date: 20140807
  Transmission Date: 20150326
  Serious: Yes (Other)
  Sender: FDA-Public Use
  Company Number: 2014HINLIT0687

PATIENT
  Age: 42 Year
  Sex: Male
  Weight: 245 kg

DRUGS (6)
  1. LITHIUM [Suspect]
     Active Substance: LITHIUM CARBONATE
     Indication: BIPOLAR DISORDER
  2. LURASIDONE (LURASIDONE) [Concomitant]
  3. ILOPERIDONE [Suspect]
     Active Substance: ILOPERIDONE
     Indication: PRODUCT USED FOR UNKNOWN INDICATION
  4. PHENYLPHRINE (PHENYLPHRINE [Concomitant]
  5. ARIPIPRAZOLE (ARIPIPRAZOLE) [Concomitant]
     Active Substance: ARIPIPRAZOLE
  6. PAROXETINE (PAROXETINE) [Concomitant]
     Active Substance: PAROXETINE HYDROCHLORIDE

REACTIONS (2)
  - Drug interaction [None]
  - Priapism [None]
